FAERS Safety Report 5374391-1 (Version None)
Quarter: 2007Q2

REPORT INFORMATION
  Report Type: 
  Country: None (occurrence: None)
  Receive Date: 20070629
  Receipt Date: 20061113
  Transmission Date: 20071010
  Serious: No
  Sender: FDA-Public Use
  Company Number: A0625360A

PATIENT
  Age: 3 Year
  Sex: Male

DRUGS (4)
  1. FLOVENT [Suspect]
     Indication: ASTHMA
     Dosage: 2PUFF TWICE PER DAY
     Route: 055
     Dates: start: 20061015
  2. ALBUTEROL [Suspect]
     Indication: ASTHMA
     Dosage: 1PUFF AS REQUIRED
     Route: 055
     Dates: start: 20061016
  3. FLINTSTONE VITAMINS [Concomitant]
  4. FLU VACCINE [Concomitant]
     Route: 065
     Dates: start: 20061012, end: 20061012

REACTIONS (2)
  - BLISTER [None]
  - RASH [None]
